FAERS Safety Report 23342392 (Version 2)
Quarter: 2024Q1

REPORT INFORMATION
  Report Type: Report from Study
  Country: GB (occurrence: GB)
  Receive Date: 20231227
  Receipt Date: 20240312
  Transmission Date: 20240409
  Serious: Yes (Other)
  Sender: FDA-Public Use
  Company Number: GB-MYLANLABS-2023M1135776

PATIENT
  Sex: Female

DRUGS (1)
  1. GLATIRAMER ACETATE [Suspect]
     Active Substance: GLATIRAMER ACETATE
     Indication: Multiple sclerosis
     Dosage: 40 MILLIGRAM, 3XW
     Route: 058
     Dates: start: 20220305

REACTIONS (12)
  - Intestinal obstruction [Unknown]
  - Vision blurred [Unknown]
  - Thrombosis [Unknown]
  - Shock [Unknown]
  - Dysgeusia [Unknown]
  - Syncope [Unknown]
  - Dyspnoea [Unknown]
  - Swelling face [Unknown]
  - Nausea [Unknown]
  - Palpitations [Unknown]
  - Hypersensitivity [Unknown]
  - Adverse reaction [Unknown]
